FAERS Safety Report 7583154 (Version 4)
Quarter: 2013Q1

REPORT INFORMATION
  Report Type: Report from Study
  Country: US (occurrence: US)
  Receive Date: 20100914
  Receipt Date: 20130306
  Transmission Date: 20140127
  Serious: Yes (Hospitalization, Other)
  Sender: FDA-Public Use
  Company Number: US-JNJFOC-20100901147

PATIENT
  Age: 27 Year
  Sex: Female
  Weight: 74.4 kg

DRUGS (11)
  1. GOLIMUMAB [Suspect]
     Indication: RHEUMATOID ARTHRITIS
     Dates: start: 20100803, end: 201008
  2. GOLIMUMAB [Suspect]
     Indication: RHEUMATOID ARTHRITIS
     Dates: start: 20100506
  3. GOLIMUMAB [Suspect]
     Indication: RHEUMATOID ARTHRITIS
     Dates: start: 20100924
  4. YAZ [Concomitant]
     Indication: CONTRACEPTION
     Route: 048
     Dates: start: 2008, end: 20100801
  5. ALEVE [Concomitant]
     Indication: PAIN
     Route: 048
     Dates: start: 2004
  6. ADVIL [Concomitant]
     Indication: ARTHRALGIA
     Route: 048
     Dates: start: 20100301
  7. FOLIC ACID [Concomitant]
     Indication: RHEUMATOID ARTHRITIS
     Route: 048
     Dates: start: 2004
  8. PREDNISONE [Concomitant]
     Indication: RHEUMATOID ARTHRITIS
  9. METHOTREXATE [Concomitant]
     Indication: RHEUMATOID ARTHRITIS
     Route: 048
     Dates: start: 2004
  10. WAL-TUSSIN [Concomitant]
  11. NYQUIL [Concomitant]

REACTIONS (1)
  - Cellulitis [Recovered/Resolved]
